FAERS Safety Report 8874805 (Version 2)
Quarter: 2012Q4

REPORT INFORMATION
  Report Type: Report from Study
  Country: JP (occurrence: JP)
  Receive Date: 20121030
  Receipt Date: 20121115
  Transmission Date: 20130627
  Serious: Yes (Death, Hospitalization)
  Sender: FDA-Public Use
  Company Number: JP-BRISTOL-MYERS SQUIBB COMPANY-17052960

PATIENT
  Age: 70 Year
  Sex: Female
  Weight: 37 kg

DRUGS (5)
  1. PACLITAXEL [Suspect]
     Indication: METASTATIC GASTRIC CANCER
     Dosage: Last dose-09jul12
     Dates: start: 20120224, end: 20120709
  2. OMEPRAZOLE [Concomitant]
     Dates: start: 20120726
  3. LINTON [Concomitant]
  4. SILECE [Concomitant]
  5. SODIUM CHLORIDE [Concomitant]
     Dates: start: 20120723

REACTIONS (3)
  - Malignant neoplasm progression [Fatal]
  - Infection [Unknown]
  - Gastrointestinal perforation [Unknown]
